FAERS Safety Report 4338378-X (Version None)
Quarter: 2004Q2

REPORT INFORMATION
  Report Type: 
  Country: None (occurrence: None)
  Receive Date: 20040409
  Receipt Date: 20040329
  Transmission Date: 20050107
  Serious: Yes (Hospitalization)
  Sender: FDA-Public Use
  Company Number: 2004021934

PATIENT
  Age: 83 Year
  Sex: Female
  Weight: 85 kg

DRUGS (3)
  1. NEURONTIN [Suspect]
     Indication: ILL-DEFINED DISORDER
     Dosage: 1800 MG (TID)
     Dates: end: 20040101
  2. INDAPAMIDE [Concomitant]
  3. TRIMETAZIDINE (TRIMETAZIDINE) [Concomitant]

REACTIONS (4)
  - ABNORMAL BEHAVIOUR [None]
  - ANXIETY [None]
  - INSOMNIA [None]
  - SUICIDAL IDEATION [None]
